FAERS Safety Report 12801742 (Version 3)
Quarter: 2020Q3

REPORT INFORMATION
  Report Type: Spontaneous
  Country: US (occurrence: US)
  Receive Date: 20161003
  Receipt Date: 20200702
  Transmission Date: 20201102
  Serious: Yes (Other)
  Sender: FDA-Public Use
  Company Number: US-AUROBINDO-AUR-APL-2016-10680

PATIENT
  Age: 3 Month
  Weight: 6.1 kg

DRUGS (11)
  1. LINEZOLID INJECTION [Suspect]
     Active Substance: LINEZOLID
     Indication: PNEUMONIA
     Dosage: UNK
     Route: 042
  2. PIPERACILLIN AND TAZOBACTAM [Concomitant]
     Active Substance: PIPERACILLIN SODIUM\TAZOBACTAM SODIUM
     Indication: PNEUMONIA
     Route: 065
  3. LINEZOLID INJECTION [Interacting]
     Active Substance: LINEZOLID
     Dosage: UNK
     Route: 042
  4. CIPROFLOXACIN. [Concomitant]
     Active Substance: CIPROFLOXACIN
     Indication: PNEUMONIA
     Dosage: UNK
     Route: 065
  5. PROPRANOLOL [Concomitant]
     Active Substance: PROPRANOLOL HYDROCHLORIDE
     Indication: HYPERTENSION
     Dosage: UNK
     Route: 065
  6. FENTANYL. [Concomitant]
     Active Substance: FENTANYL
     Indication: SEDATIVE THERAPY
     Dosage: UNK
     Route: 040
  7. DOPAMINE [Interacting]
     Active Substance: DOPAMINE HYDROCHLORIDE
     Indication: BLOOD PRESSURE MEASUREMENT
     Dosage: 6 TO 8 ?G/KG/MIN
     Route: 042
  8. MIDAZOLAM. [Concomitant]
     Active Substance: MIDAZOLAM
     Indication: SEDATIVE THERAPY
     Dosage: UNK
     Route: 040
  9. FENTANYL. [Concomitant]
     Active Substance: FENTANYL
     Dosage: UNK
     Route: 040
  10. DOPAMINE [Interacting]
     Active Substance: DOPAMINE HYDROCHLORIDE
     Indication: OXYGEN SATURATION
     Dosage: 6 TO 8 ?G/KG/MIN
     Route: 042
  11. DOPAMINE [Interacting]
     Active Substance: DOPAMINE HYDROCHLORIDE
     Indication: BLOOD PRESSURE MANAGEMENT

REACTIONS (3)
  - Drug interaction [Recovered/Resolved]
  - Tachycardia [Recovered/Resolved]
  - Hypertension [Recovered/Resolved]
